FAERS Safety Report 8425411-9 (Version None)
Quarter: 2012Q2

REPORT INFORMATION
  Report Type: 
  Country: None (occurrence: None)
  Receive Date: 20120611
  Receipt Date: 20120530
  Transmission Date: 20120825
  Serious: Yes (Hospitalization, Other)
  Sender: FDA-Public Use
  Company Number: JP-ELI_LILLY_AND_COMPANY-JP201204008419

PATIENT
  Age: 76 Year
  Sex: Female

DRUGS (18)
  1. OXYCONTIN [Concomitant]
     Indication: PAIN MANAGEMENT
     Dosage: 40 MG, TID
     Dates: start: 20120201, end: 20120420
  2. LEVOTHYROXINE SODIUM [Concomitant]
     Indication: HYPOTHYROIDISM
     Dosage: 50 UG, UNK
     Route: 048
     Dates: start: 20120201
  3. LOXONIN [Concomitant]
     Indication: PAIN MANAGEMENT
     Dosage: 60 MG, BID
     Route: 048
     Dates: start: 20120201
  4. AMLODIPINE [Concomitant]
     Indication: HYPERTENSION
     Dosage: 5 MG, UNK
     Route: 048
  5. PLETAL [Concomitant]
     Indication: CEREBRAL INFARCTION
     Dosage: 50 MG, BID
     Dates: start: 20120201
  6. MASBLON H [Concomitant]
     Dosage: UNK
     Dates: start: 20120321
  7. DECADRON [Concomitant]
     Dosage: 2 MG, UNK
     Dates: start: 20120322
  8. LANSOPRAZOLE [Concomitant]
     Dosage: 15 MG, UNK
     Route: 048
     Dates: start: 20120201
  9. MICARDIS [Concomitant]
     Indication: HYPERTENSION
     Dosage: 20 MG, UNK
     Route: 048
  10. CALBLOCK                                /JPN/ [Concomitant]
     Indication: HYPERTENSION
     Dosage: 8 MG, UNK
     Route: 048
  11. PANVITAN [Concomitant]
     Dosage: 1 G, UNK
     Dates: start: 20120321
  12. LYRICA [Concomitant]
     Indication: PAIN MANAGEMENT
     Dosage: 75 MG, UNK
     Route: 048
  13. ZOMETA [Concomitant]
     Indication: METASTASES TO BONE
     Dosage: 3.3 MG, UNK
     Route: 042
     Dates: start: 20120323, end: 20120323
  14. ZOMETA [Concomitant]
     Dosage: 4.0 MG, UNK
     Route: 042
     Dates: start: 20120413, end: 20120413
  15. PEMETREXED [Suspect]
     Indication: LUNG ADENOCARCINOMA STAGE IV
     Dosage: 700 MG, OTHER
     Route: 042
     Dates: start: 20120322, end: 20120416
  16. VESICARE [Concomitant]
     Dosage: 5 MG, UNK
     Dates: start: 20120201
  17. GRANISETRON [Concomitant]
     Dosage: 3 MG, UNK
     Dates: start: 20120322, end: 20120416
  18. MICONAZOLE [Concomitant]
     Indication: ORAL CANDIDIASIS
     Route: 048

REACTIONS (3)
  - LETHARGY [None]
  - WHITE BLOOD CELL COUNT DECREASED [None]
  - BLOOD CREATINE PHOSPHOKINASE INCREASED [None]
